FAERS Safety Report 16475623 (Version 1)
Quarter: 2019Q2

REPORT INFORMATION
  Report Type: Spontaneous
  Country: CA (occurrence: CA)
  Receive Date: 20190625
  Receipt Date: 20190625
  Transmission Date: 20190711
  Serious: Yes (Other)
  Sender: FDA-Public Use
  Company Number: CA-TEVA-2019-CA-1068417

PATIENT
  Age: 59 Year
  Sex: Male

DRUGS (3)
  1. METOPROLOL. [Suspect]
     Active Substance: METOPROLOL
     Indication: VENTRICULAR TACHYCARDIA
     Dosage: 50 MILLIGRAM DAILY;
     Route: 048
  2. AMIODARONE HYDROCHLORIDE. [Suspect]
     Active Substance: AMIODARONE HYDROCHLORIDE
     Indication: PRODUCT USED FOR UNKNOWN INDICATION
     Route: 042
  3. AMIODARONE HYDROCHLORIDE. [Suspect]
     Active Substance: AMIODARONE HYDROCHLORIDE
     Route: 042

REACTIONS (2)
  - Ventricular tachycardia [Recovering/Resolving]
  - Ventricular fibrillation [Recovering/Resolving]
